FAERS Safety Report 17912486 (Version 1)
Quarter: 2020Q2

REPORT INFORMATION
  Report Type: Spontaneous
  Country: JP (occurrence: JP)
  Receive Date: 20200618
  Receipt Date: 20200618
  Transmission Date: 20200714
  Serious: Yes (Death, Other)
  Sender: FDA-Public Use
  Company Number: JP-ACTELION-A-CH2020-206171

PATIENT
  Age: 28 Day
  Sex: Male

DRUGS (5)
  1. ALBUMIN [Concomitant]
     Active Substance: ALBUMIN HUMAN
  2. OXYGEN. [Concomitant]
     Active Substance: OXYGEN
  3. NITRIC OXIDE. [Concomitant]
     Active Substance: NITRIC OXIDE
  4. MILRINONE [Concomitant]
     Active Substance: MILRINONE
  5. EPOPROSTENOL ACT [Suspect]
     Active Substance: EPOPROSTENOL
     Indication: NEWBORN PERSISTENT PULMONARY HYPERTENSION
     Route: 042

REACTIONS (3)
  - Therapy non-responder [Unknown]
  - Death [Fatal]
  - Renal failure [Unknown]
